FAERS Safety Report 4376606-5 (Version None)
Quarter: 2004Q2

REPORT INFORMATION
  Report Type: 
  Country: None (occurrence: None)
  Receive Date: 20040608
  Receipt Date: 20040524
  Transmission Date: 20050107
  Serious: Yes (Death)
  Sender: FDA-Public Use
  Company Number: US-JNJFOC-20040505276

PATIENT
  Age: 38 Year
  Sex: Male

DRUGS (1)
  1. DURAGESIC [Suspect]
     Indication: DRUG USE FOR UNKNOWN INDICATION
     Dosage: INTRAVENOUS
     Route: 042

REACTIONS (12)
  - ACCIDENT [None]
  - CARDIOMEGALY [None]
  - CHRONIC HEPATITIS [None]
  - CORONARY ARTERY ATHEROSCLEROSIS [None]
  - NAUSEA [None]
  - POISONING [None]
  - PULMONARY COCCIDIOIDES [None]
  - PULMONARY CONGESTION [None]
  - PULMONARY GRANULOMA [None]
  - PULMONARY NECROSIS [None]
  - PULMONARY OEDEMA [None]
  - SCAR [None]
